FAERS Safety Report 15501332 (Version 3)
Quarter: 2018Q4

REPORT INFORMATION
  Report Type: Spontaneous
  Country: TR (occurrence: TR)
  Receive Date: 20181015
  Receipt Date: 20181015
  Transmission Date: 20190205
  Serious: Yes (Other)
  Sender: FDA-Public Use
  Company Number: PHHY2018TR125513

PATIENT
  Age: 50 Year
  Sex: Male

DRUGS (1)
  1. DICLOFENAC [Suspect]
     Active Substance: DICLOFENAC
     Indication: BACK PAIN
     Dosage: 2-3 TIMES A WEEK
     Route: 030

REACTIONS (4)
  - Injection site erythema [Recovering/Resolving]
  - Embolia cutis medicamentosa [Recovering/Resolving]
  - Wound complication [Recovering/Resolving]
  - Injection site ulcer [Recovering/Resolving]
